FAERS Safety Report 23127451 (Version 2)
Quarter: 2023Q4

REPORT INFORMATION
  Report Type: Spontaneous
  Country: US (occurrence: US)
  Receive Date: 20231031
  Receipt Date: 20231213
  Transmission Date: 20240110
  Serious: No
  Sender: FDA-Public Use
  Company Number: US-JNJFOC-20231066034

PATIENT
  Age: 43 Year
  Sex: Female
  Weight: 95.34 kg

DRUGS (1)
  1. TREMFYA [Suspect]
     Active Substance: GUSELKUMAB
     Indication: Psoriatic arthropathy
     Route: 058
     Dates: start: 202303

REACTIONS (3)
  - Device issue [Unknown]
  - Product leakage [Unknown]
  - Product dose omission issue [Unknown]

NARRATIVE: CASE EVENT DATE: 20231020
